FAERS Safety Report 22245588 (Version 1)
Quarter: 2023Q2

REPORT INFORMATION
  Report Type: Spontaneous
  Country: US (occurrence: None)
  Receive Date: 20230421
  Receipt Date: 20230421
  Transmission Date: 20230722
  Serious: No
  Sender: FDA-Public Use
  Company Number: None

PATIENT
  Age: 60 Year
  Sex: Female
  Weight: 60.92 kg

DRUGS (7)
  1. CAPECITABINE [Suspect]
     Active Substance: CAPECITABINE
     Indication: Colon cancer
     Dosage: FREQUENCY : TWICE A DAY;?
     Route: 048
     Dates: start: 202211
  2. BISOPROLOL [Concomitant]
     Active Substance: BISOPROLOL
  3. GABAPENTIN [Concomitant]
     Active Substance: GABAPENTIN
  4. LOPERAMIDE [Concomitant]
     Active Substance: LOPERAMIDE
  5. LORATADINE [Concomitant]
     Active Substance: LORATADINE
  6. NORCO [Concomitant]
     Active Substance: ACETAMINOPHEN\HYDROCODONE BITARTRATE
  7. OMEPRAZOLE [Concomitant]
     Active Substance: OMEPRAZOLE

REACTIONS (2)
  - Disease progression [None]
  - Therapy interrupted [None]
